FAERS Safety Report 9300474 (Version 1)
Quarter: 2012Q4

REPORT INFORMATION
  Report Type: Spontaneous
  Country: JP (occurrence: None)
  Receive Date: 20121114
  Receipt Date: 20121114
  Transmission Date: 20130627
  Serious: Yes (Hospitalization)
  Sender: FDA-Public Use
  Company Number: 0233418

PATIENT
  Age: 67 Year
  Sex: Female

DRUGS (7)
  1. TACHOSIL [Suspect]
     Indication: HAEMOSTASIS
     Dosage: 1 DOSAGE FORMS
  2. NEORAL (CICLOSPORIN)(TABLETS) [Concomitant]
  3. URSO (URSODEOXYCHOLIC ACID) (TABLETS) [Concomitant]
  4. PARIET (RABEPRAZOLE SODIUM) (TABLETS) [Concomitant]
  5. ADALAT CR (NIPEDIPINE) [Concomitant]
  6. LENDORMIN (BROTIZOLAM)(TABLETS) [Concomitant]
  7. ZYLORIC (ALLOPURINOL) (TABLETS) [Concomitant]

REACTIONS (1)
  - Liver abscess [None]
